FAERS Safety Report 8385940-3 (Version None)
Quarter: 2012Q2

REPORT INFORMATION
  Report Type: 
  Country: None (occurrence: None)
  Receive Date: 20120525
  Receipt Date: 20120514
  Transmission Date: 20120825
  Serious: Yes (Hospitalization)
  Sender: FDA-Public Use
  Company Number: CA-JNJFOC-20120513153

PATIENT
  Sex: Female
  Weight: 60 kg

DRUGS (11)
  1. REMICADE [Suspect]
     Route: 042
     Dates: start: 20081203
  2. LOVAZA [Concomitant]
     Route: 065
  3. GNC MULTIVITAMIN [Concomitant]
     Route: 065
  4. CALCIUM AND MAGNESIUM [Concomitant]
     Route: 065
  5. SERTRALINE HYDROCHLORIDE [Concomitant]
     Route: 065
  6. BUPROPION HYDROCHLORIDE [Concomitant]
     Route: 065
  7. VITAMIN B15 [Concomitant]
     Route: 065
  8. VITAMIN D [Concomitant]
     Dosage: 350MG/175MG
     Route: 065
  9. REMICADE [Suspect]
     Indication: CROHN'S DISEASE
     Route: 042
  10. FOLIC ACID [Concomitant]
     Route: 065
  11. MESALAMINE [Concomitant]
     Dosage: 8/DAY
     Route: 065

REACTIONS (4)
  - VESTIBULAR NEURONITIS [None]
  - CROHN'S DISEASE [None]
  - MALAISE [None]
  - MATERNAL EXPOSURE DURING PREGNANCY [None]
